FAERS Safety Report 8615066 (Version 5)
Quarter: 2013Q4

REPORT INFORMATION
  Report Type: Spontaneous
  Country: US (occurrence: US)
  Receive Date: 20120530
  Receipt Date: 20131108
  Transmission Date: 20140711
  Serious: Yes (Life-Threatening, Hospitalization, Disabling, Other)
  Sender: FDA-Public Use
  Company Number: US-009507513-2012SP022940

PATIENT
  Age: 45 Year
  Sex: Female
  Weight: 63.5 kg

DRUGS (3)
  1. NUVARING [Suspect]
     Dosage: ONE RING FOR 3 WEEKS, FOLLOWED BY A RING FREE WEEK
     Route: 067
     Dates: start: 200304, end: 200807
  2. NUVARING [Suspect]
     Dosage: ONE RING FOR 3 WEEKS, FOLLOWED BY A RING FREE WEEK
     Route: 067
     Dates: start: 20080909, end: 201105
  3. ALBUTEROL [Concomitant]
     Dosage: UNK
     Dates: start: 200701

REACTIONS (3)
  - Thoracic outlet syndrome [Unknown]
  - Deep vein thrombosis [Not Recovered/Not Resolved]
  - Pulmonary embolism [Recovered/Resolved with Sequelae]
